FAERS Safety Report 12516219 (Version 2)
Quarter: 2016Q3

REPORT INFORMATION
  Report Type: Spontaneous
  Country: US (occurrence: US)
  Receive Date: 20160630
  Receipt Date: 20160912
  Transmission Date: 20161109
  Serious: Yes (Hospitalization)
  Sender: FDA-Public Use
  Company Number: US-JNJFOC-20160618650

PATIENT
  Age: 65 Year
  Sex: Female

DRUGS (4)
  1. XARELTO [Suspect]
     Active Substance: RIVAROXABAN
     Indication: CEREBROVASCULAR ACCIDENT PROPHYLAXIS
     Dosage: 15 MG TWICE DAILY FOR 03 WEEKS AND THEN 20 MG DAILY
     Route: 048
     Dates: start: 20140731, end: 20150403
  2. XARELTO [Suspect]
     Active Substance: RIVAROXABAN
     Indication: ATRIAL FIBRILLATION
     Dosage: 15 MG TWICE DAILY FOR 03 WEEKS AND THEN 20 MG DAILY
     Route: 048
     Dates: start: 20140731, end: 20150403
  3. XARELTO [Suspect]
     Active Substance: RIVAROXABAN
     Indication: PULMONARY EMBOLISM
     Dosage: 15 MG TWICE DAILY FOR 03 WEEKS AND THEN 20 MG DAILY
     Route: 048
     Dates: start: 20140731, end: 20150403
  4. XARELTO [Suspect]
     Active Substance: RIVAROXABAN
     Indication: THROMBOSIS PROPHYLAXIS
     Dosage: 15 MG TWICE DAILY FOR 03 WEEKS AND THEN 20 MG DAILY
     Route: 048
     Dates: start: 20140731, end: 20150403

REACTIONS (1)
  - Gastrointestinal haemorrhage [Recovering/Resolving]

NARRATIVE: CASE EVENT DATE: 20150402
